FAERS Safety Report 7388977-6 (Version None)
Quarter: 2011Q2

REPORT INFORMATION
  Report Type: 
  Country: None (occurrence: None)
  Receive Date: 20110401
  Receipt Date: 20110318
  Transmission Date: 20111010
  Serious: Yes (Other)
  Sender: FDA-Public Use
  Company Number: US-ASTRAZENECA-2007UW25620

PATIENT
  Sex: Female
  Weight: 64.4 kg

DRUGS (6)
  1. SEROQUEL [Suspect]
     Indication: SLEEP DISORDER
     Dosage: 25 TO 300 MG
     Route: 048
     Dates: start: 20010417, end: 20051105
  2. GEODON [Concomitant]
     Dates: start: 20100101
  3. PRISTIQ [Concomitant]
     Dates: start: 20100101
  4. SEROQUEL [Suspect]
     Indication: DEPRESSION
     Dosage: 25 TO 300 MG
     Route: 048
     Dates: start: 20010417, end: 20051105
  5. PAXIL [Concomitant]
     Dates: start: 19950101
  6. RISPERDAL [Concomitant]

REACTIONS (4)
  - PANCREATIC DISORDER [None]
  - TYPE 2 DIABETES MELLITUS [None]
  - PANCREATITIS [None]
  - NEOPLASM [None]
